FAERS Safety Report 8770311 (Version 1)
Quarter: 2012Q4

REPORT INFORMATION
  Report Type: 
  Country: GB (occurrence: GB)
  Receive Date: 20120904
  Receipt Date: 20120904
  Transmission Date: 20130627
  Serious: Yes (Death)
  Sender: FDA-Public Use
  Company Number: PHHY2010GB094783

PATIENT

DRUGS (1)
  1. NEORAL [Suspect]
     Indication: RENAL TRANSPLANT

REACTIONS (1)
  - Tongue neoplasm malignant stage unspecified [Fatal]
